FAERS Safety Report 6410494-8 (Version None)
Quarter: 2009Q4

REPORT INFORMATION
  Report Type: 
  Country: None (occurrence: None)
  Receive Date: 20091022
  Receipt Date: 20091020
  Transmission Date: 20100525
  Serious: Yes (Disabling)
  Sender: FDA-Public Use
  Company Number: US-MERCK-0903USA02544

PATIENT
  Age: 67 Year
  Sex: Female

DRUGS (4)
  1. FOSAMAX [Suspect]
     Indication: OSTEOPENIA
     Route: 048
     Dates: start: 20010401, end: 20070101
  2. FOSAMAX [Suspect]
     Route: 048
     Dates: start: 19950901
  3. FOSAMAX [Suspect]
     Route: 048
     Dates: end: 20010301
  4. FOSAMAX PLUS D [Suspect]
     Indication: OSTEOPENIA
     Route: 048
     Dates: start: 20070801, end: 20080421

REACTIONS (7)
  - ADVERSE DRUG REACTION [None]
  - BLOOD CHOLESTEROL INCREASED [None]
  - FEMUR FRACTURE [None]
  - GAIT DISTURBANCE [None]
  - LIMB DISCOMFORT [None]
  - MUSCLE SPASMS [None]
  - MYALGIA [None]
